FAERS Safety Report 16112590 (Version 6)
Quarter: 2021Q2

REPORT INFORMATION
  Report Type: Spontaneous
  Country: US (occurrence: US)
  Receive Date: 20190325
  Receipt Date: 20210626
  Transmission Date: 20210716
  Serious: Yes (Other)
  Sender: FDA-Public Use
  Company Number: US-TEVA-2019-US-1029867

PATIENT
  Age: 72 Year
  Sex: Female

DRUGS (1)
  1. PROVIGIL [Suspect]
     Active Substance: MODAFINIL
     Route: 065

REACTIONS (9)
  - Somnolence [Unknown]
  - Knee arthroplasty [Unknown]
  - Mouth swelling [Unknown]
  - Insomnia [Unknown]
  - Poor quality sleep [Unknown]
  - Product supply issue [Unknown]
  - Drug dependence [Unknown]
  - Oral disorder [Unknown]
  - Dental operation [Unknown]
